FAERS Safety Report 5615470-0 (Version None)
Quarter: 2008Q1

REPORT INFORMATION
  Report Type: 
  Country: None (occurrence: None)
  Receive Date: 20080204
  Receipt Date: 20080204
  Transmission Date: 20080703
  Serious: Yes (Other)
  Sender: FDA-Public Use
  Company Number: None

PATIENT
  Age: 73 Year
  Sex: Female

DRUGS (6)
  1. PHENYTOIN [Suspect]
     Indication: CONVULSION
     Dosage: 1 TWICE DAILY
     Dates: start: 20071004
  2. DIOVAN [Concomitant]
  3. CLARINEX [Concomitant]
  4. FLOVENT [Concomitant]
  5. FEXOFENADINE [Concomitant]
  6. FLONASE [Concomitant]

REACTIONS (2)
  - DRUG LEVEL DECREASED [None]
  - ILL-DEFINED DISORDER [None]
